FAERS Safety Report 14598447 (Version 2)
Quarter: 2021Q3

REPORT INFORMATION
  Report Type: Spontaneous
  Country: US (occurrence: US)
  Receive Date: 20180305
  Receipt Date: 20210927
  Transmission Date: 20211014
  Serious: Yes (Disabling)
  Sender: FDA-Public Use
  Company Number: US-TEVA-2018-US-866167

PATIENT
  Age: 53 Year
  Sex: Female
  Weight: 88.9 kg

DRUGS (12)
  1. CYTOXAN [Suspect]
     Active Substance: CYCLOPHOSPHAMIDE
     Indication: BREAST CANCER FEMALE
     Dosage: DOSAGE: 600 MG/M2, NO OF CYCLES: 04, EVERY 3 WEEKS
     Route: 042
     Dates: start: 20130917, end: 20131119
  2. ALOXI [Concomitant]
     Active Substance: PALONOSETRON HYDROCHLORIDE
     Route: 042
     Dates: start: 20130917, end: 20131119
  3. DOCETAXEL SANDOZ [Suspect]
     Active Substance: DOCETAXEL
     Dosage: DOSAGE: 75 MG/M2, NO OF CYCLES: 04, EVERY 3 WEEKS
     Route: 042
     Dates: start: 20130917, end: 20131119
  4. DOCETAXEL SANDOZ [Suspect]
     Active Substance: DOCETAXEL
     Indication: BREAST CANCER FEMALE
     Dosage: DOSAGE: 75 MG/M2, NO OF CYCLES: 04, EVERY 3 WEEKS
     Route: 042
     Dates: start: 20130917, end: 20131119
  5. VITAMIN B12 [Concomitant]
     Active Substance: CYANOCOBALAMIN
     Route: 048
     Dates: start: 201203
  6. DOCETAXEL SAGENT [Suspect]
     Active Substance: DOCETAXEL
     Indication: BREAST CANCER FEMALE
     Dosage: DOSAGE: 75 MG/M2, NO OF CYCLES: 04, EVERY 3 WEEKS
     Route: 042
     Dates: start: 20130917, end: 20131119
  7. DOCETAXEL SAGENT [Suspect]
     Active Substance: DOCETAXEL
     Dosage: DOSAGE: 75 MG/M2, NO OF CYCLES: 04, EVERY 3 WEEKS
     Route: 042
     Dates: start: 20130917, end: 20131119
  8. DECADRON [Concomitant]
     Active Substance: DEXAMETHASONE
     Dosage: TAKE DAY BEFORE, DAY OF, DAY AFTER
     Route: 042
     Dates: start: 20130917, end: 20131119
  9. DOCETAXEL ACCORD [Suspect]
     Active Substance: DOCETAXEL
     Indication: BREAST CANCER FEMALE
     Dosage: DOSAGE: 75 MG/M2, NO OF CYCLES: 04, EVERY 3 WEEKS
     Route: 042
     Dates: start: 20130917, end: 20131119
  10. CARVEDILOL. [Concomitant]
     Active Substance: CARVEDILOL
     Route: 048
  11. BENADRYL [Concomitant]
     Active Substance: DIPHENHYDRAMINE HYDROCHLORIDE
     Route: 042
     Dates: start: 20130917, end: 20131119
  12. NEULASTA [Concomitant]
     Active Substance: PEGFILGRASTIM
     Dates: start: 20130918, end: 20131120

REACTIONS (9)
  - Alopecia areata [Unknown]
  - Madarosis [Unknown]
  - Hair colour changes [Unknown]
  - Fatigue [Unknown]
  - Asthenia [Unknown]
  - Skin disorder [Unknown]
  - Nail discolouration [Unknown]
  - Hair texture abnormal [Unknown]
  - Chemical phlebitis [Recovering/Resolving]

NARRATIVE: CASE EVENT DATE: 2013
